FAERS Safety Report 25946322 (Version 1)
Quarter: 2025Q4

REPORT INFORMATION
  Report Type: Report from Study
  Country: EU (occurrence: EU)
  Receive Date: 20251022
  Receipt Date: 20251022
  Transmission Date: 20260119
  Serious: Yes (Other)
  Sender: EXELIXIS
  Company Number: EU-IPSEN Group, Research and Development-2025-25842

PATIENT
  Age: 64 Year

DRUGS (2)
  1. CABOMETYX [Suspect]
     Active Substance: CABOZANTINIB S-MALATE
     Indication: Renal cell carcinoma
     Dosage: 40 MG/DIE PER OS
     Route: 048
     Dates: start: 20230616, end: 202506
  2. NIVOLUMAB [Suspect]
     Active Substance: NIVOLUMAB
     Indication: Renal cell carcinoma
     Dosage: 240 MG EV Q14
     Dates: start: 20230616

REACTIONS (2)
  - Gastrointestinal toxicity [Unknown]
  - Hypertension [Unknown]

NARRATIVE: CASE EVENT DATE: 20240601
